FAERS Safety Report 18781221 (Version 1)
Quarter: 2021Q1

REPORT INFORMATION
  Report Type: Spontaneous
  Country: US (occurrence: US)
  Receive Date: 20210122
  Receipt Date: 20210122
  Transmission Date: 20210419
  Serious: Yes (Hospitalization)
  Sender: FDA-Public Use
  Company Number: None

PATIENT
  Sex: Female

DRUGS (13)
  1. ONDANSETRON [Concomitant]
     Active Substance: ONDANSETRON
  2. PIQRAY [Suspect]
     Active Substance: ALPELISIB
     Indication: BREAST CANCER FEMALE
     Route: 048
     Dates: start: 20201117
  3. OXYCODONE [Concomitant]
     Active Substance: OXYCODONE
  4. CLONIDINE. [Concomitant]
     Active Substance: CLONIDINE
  5. DEXAMETHASON [Concomitant]
     Active Substance: DEXAMETHASONE
  6. LANTUS [Concomitant]
     Active Substance: INSULIN GLARGINE
  7. ONE?A?DAY WOMENS [Concomitant]
  8. POT CHLORIDE [Concomitant]
     Active Substance: POTASSIUM CHLORIDE
  9. FASLODEX [Concomitant]
     Active Substance: FULVESTRANT
  10. METFORMIN [Concomitant]
     Active Substance: METFORMIN HYDROCHLORIDE
  11. AMLOD/ATORVA [Concomitant]
  12. PANTOPRAZOLE [Concomitant]
     Active Substance: PANTOPRAZOLE
  13. ENOXAPARIN [Concomitant]
     Active Substance: ENOXAPARIN

REACTIONS (2)
  - Blood glucose increased [None]
  - Therapy cessation [None]
